FAERS Safety Report 8846646 (Version 2)
Quarter: 2012Q4

REPORT INFORMATION
  Report Type: Report from Study
  Country: US (occurrence: US)
  Receive Date: 20121017
  Receipt Date: 20121022
  Transmission Date: 20130627
  Serious: Yes (Hospitalization, Other)
  Sender: FDA-Public Use
  Company Number: US-ABBOTT-12P-163-0992995-00

PATIENT
  Age: 40 None
  Sex: Female

DRUGS (7)
  1. HUMIRA [Suspect]
     Indication: ANKYLOSING SPONDYLITIS
  2. GABAPENTIN [Concomitant]
     Indication: FIBROMYALGIA
     Dosage: 100mg (3) three times daily
  3. NAPROXEN SODIUM [Concomitant]
     Indication: PRODUCT USED FOR UNKNOWN INDICATION
  4. LEVOTHYROXINE [Concomitant]
     Indication: THYROID DISORDER
  5. CYMBALTA [Concomitant]
     Indication: DEPRESSION
     Dosage: 60mg daily
  6. ABILIFY [Concomitant]
     Indication: DEPRESSION
  7. HYDROXYZINE [Concomitant]
     Indication: ANXIETY

REACTIONS (7)
  - Convulsion [Not Recovered/Not Resolved]
  - Convulsion [Unknown]
  - Stress [Unknown]
  - Device malfunction [Unknown]
  - Bipolar disorder [Unknown]
  - Depression [Unknown]
  - Bipolar I disorder [Unknown]
